FAERS Safety Report 5891591-2 (Version None)
Quarter: 2008Q3

REPORT INFORMATION
  Report Type: 
  Country: None (occurrence: None)
  Receive Date: 20080918
  Receipt Date: 20080904
  Transmission Date: 20090109
  Serious: Yes (Death)
  Sender: FDA-Public Use
  Company Number: 2008001996

PATIENT
  Age: 53 Year
  Sex: Male

DRUGS (13)
  1. ERLOTINIB (ERLOTINIB) (TABLET) (ERLOTINIB) [Suspect]
     Indication: LUNG ADENOCARCINOMA
     Dosage: (150 MG,QD), ORAL
     Route: 048
     Dates: start: 20080708, end: 20080726
  2. MEDICON (DEXTROMETHORPHAN HYDROBROMIDE) [Concomitant]
  3. MUCOSOLVAN (AMBROXOL HYDROCHLORIDE) [Concomitant]
  4. MUCODYNE (CARBOCISTEINE) [Concomitant]
  5. ZOLPIDEM TARTRATE [Concomitant]
  6. LOXONIN (LOXOPROFEN SODIUM) [Concomitant]
  7. HUSTAGIN (PLANTAGO MAJOR) [Concomitant]
  8. APRICOT [Concomitant]
  9. CODEINE PHOPHATE (CODEINE PHOSPHATE) [Concomitant]
  10. MUCOSTA (REBAMIPIDE) [Concomitant]
  11. LAXOBERON (SODIUM PICOSULFATE) [Concomitant]
  12. OXYCONTIN [Concomitant]
  13. OXINORM (ORGOTEIN) [Concomitant]

REACTIONS (11)
  - BRONCHOSTENOSIS [None]
  - CARDIO-RESPIRATORY ARREST [None]
  - DISEASE PROGRESSION [None]
  - DRY SKIN [None]
  - DYSPNOEA [None]
  - HAEMOPTYSIS [None]
  - HAEMORRHAGE [None]
  - HEPATIC FUNCTION ABNORMAL [None]
  - RASH [None]
  - SHOCK [None]
  - WHITE BLOOD CELL COUNT DECREASED [None]
